FAERS Safety Report 17053521 (Version 1)
Quarter: 2019Q4

REPORT INFORMATION
  Report Type: Report from Study
  Country: US (occurrence: US)
  Receive Date: 20191120
  Receipt Date: 20191120
  Transmission Date: 20200122
  Serious: No
  Sender: FDA-Public Use
  Company Number: US-AMGEN-USACT2019189816

PATIENT
  Age: 42 Year
  Sex: Female

DRUGS (2)
  1. TALIMOGENE LAHERPAREPVEC [Suspect]
     Active Substance: TALIMOGENE LAHERPAREPVEC
     Indication: TRIPLE NEGATIVE BREAST CANCER
     Dosage: UNK
     Route: 065
     Dates: start: 20191106
  2. PACLITAXEL. [Concomitant]
     Active Substance: PACLITAXEL
     Dosage: 1 UNK
     Dates: start: 20191106

REACTIONS (2)
  - Oral herpes [Unknown]
  - Genital herpes [Unknown]

NARRATIVE: CASE EVENT DATE: 20191111
